FAERS Safety Report 6964697-4 (Version None)
Quarter: 2010Q3

REPORT INFORMATION
  Report Type: 
  Country: None (occurrence: None)
  Receive Date: 20100903
  Receipt Date: 20100823
  Transmission Date: 20110219
  Serious: Yes (Death)
  Sender: FDA-Public Use
  Company Number: GB-CUBIST-2010S1001187

PATIENT
  Sex: Female

DRUGS (3)
  1. CUBICIN [Suspect]
     Indication: ENDOCARDITIS
     Dates: start: 20100723
  2. VANCOMYCIN [Concomitant]
     Indication: PRODUCT USED FOR UNKNOWN INDICATION
  3. LINEZOLID [Concomitant]
     Indication: PRODUCT USED FOR UNKNOWN INDICATION

REACTIONS (2)
  - ENDOCARDITIS STAPHYLOCOCCAL [None]
  - STAPHYLOCOCCAL SEPSIS [None]
